FAERS Safety Report 4651631-5 (Version None)
Quarter: 2005Q2

REPORT INFORMATION
  Report Type: 
  Country: None (occurrence: None)
  Receive Date: 20050502
  Receipt Date: 20050418
  Transmission Date: 20051028
  Serious: Yes (Other)
  Sender: FDA-Public Use
  Company Number: S05-USA-02149-01

PATIENT
  Age: 69 Year
  Sex: Female

DRUGS (5)
  1. THYROID TAB [Suspect]
     Indication: HYPOTHYROIDISM
     Dates: start: 20040601, end: 20050121
  2. CYTOMEL [Suspect]
     Indication: HYPOTHYROIDISM
     Dates: start: 20040601, end: 20050121
  3. BUMEX [Concomitant]
  4. DIOVAN [Concomitant]
  5. MICRO-K (POTASSIUM) [Concomitant]

REACTIONS (8)
  - ALOPECIA [None]
  - ASTHENIA [None]
  - CORNEAL DISORDER [None]
  - GLAUCOMA [None]
  - HEART RATE DECREASED [None]
  - LETHARGY [None]
  - POST PROCEDURAL COMPLICATION [None]
  - WEIGHT INCREASED [None]
